FAERS Safety Report 18400528 (Version 4)
Quarter: 2020Q4

REPORT INFORMATION
  Report Type: Spontaneous
  Country: US (occurrence: US)
  Receive Date: 20201019
  Receipt Date: 20201028
  Transmission Date: 20210114
  Serious: Yes (Other)
  Sender: FDA-Public Use
  Company Number: US-PFIZER INC-2020166812

PATIENT
  Age: 78 Year
  Sex: Female

DRUGS (2)
  1. LYRICA [Suspect]
     Active Substance: PREGABALIN
     Indication: PAIN
     Dosage: 100 MG, DAILY (TAKE 1 CAPSULE BY MOUTH DAILY)
     Route: 048
     Dates: start: 20200421
  2. LYRICA [Suspect]
     Active Substance: PREGABALIN
     Dosage: 100 MG, DAILY (TAKE 1 CAPSULE BY MOUTH DAILY)
     Route: 048
     Dates: start: 20201026

REACTIONS (1)
  - Cervical vertebral fracture [Unknown]
